FAERS Safety Report 5750259-3 (Version None)
Quarter: 2008Q2

REPORT INFORMATION
  Report Type: 
  Country: None (occurrence: None)
  Receive Date: 20080522
  Receipt Date: 20080522
  Transmission Date: 20081010
  Serious: Yes (Hospitalization, Disabling, Other)
  Sender: FDA-Public Use
  Company Number: None

PATIENT
  Sex: Male
  Weight: 79.3795 kg

DRUGS (1)
  1. DIGITEK 250 MCG. [Suspect]
     Indication: CARDIAC DISORDER
     Dosage: 1 @ DAY
     Dates: start: 20051101, end: 20080501

REACTIONS (7)
  - ANOREXIA [None]
  - BLOOD POTASSIUM DECREASED [None]
  - DIZZINESS [None]
  - DYSPNOEA [None]
  - PANIC ATTACK [None]
  - VISION BLURRED [None]
  - VISUAL DISTURBANCE [None]
